FAERS Safety Report 14140211 (Version 1)
Quarter: 2017Q4

REPORT INFORMATION
  Report Type: Spontaneous
  Country: US (occurrence: US)
  Receive Date: 20171030
  Receipt Date: 20171030
  Transmission Date: 20180321
  Serious: No
  Sender: FDA-Public Use
  Company Number: US-TEVA-723338ACC

PATIENT
  Age: 27 Year
  Sex: Female

DRUGS (2)
  1. GABAPENTIN. [Suspect]
     Active Substance: GABAPENTIN
     Route: 065
  2. OMEPRAZOLE DELAYED RELEASE CAPSULES,10 MG, 20 MG AND 30 MG [Interacting]
     Active Substance: OMEPRAZOLE
     Route: 065

REACTIONS (2)
  - Vomiting [Unknown]
  - Drug interaction [Unknown]
